FAERS Safety Report 6382150-6 (Version None)
Quarter: 2009Q3

REPORT INFORMATION
  Report Type: 
  Country: None (occurrence: None)
  Receive Date: 20090930
  Receipt Date: 20090922
  Transmission Date: 20100115
  Serious: Yes (Life-Threatening, Hospitalization)
  Sender: FDA-Public Use
  Company Number: US-BRISTOL-MYERS SQUIBB COMPANY-14790364

PATIENT
  Age: 35 Year
  Sex: Female
  Weight: 161 kg

DRUGS (11)
  1. METFORMIN HCL [Suspect]
  2. METOPROLOL TARTRATE [Suspect]
     Indication: HYPERTENSION
     Dosage: 100 MG-PRECONCEPTION.0,14,35 AND 38 WEEK 50 MG-22 AND 29 WEEK
  3. MONOPRIL [Suspect]
     Indication: HYPERTENSION
     Dosage: 80MG PRECONCEPTION,0 WEEK, AND 14 WEEL
  4. ATORVASTATIN [Suspect]
  5. EXENATIDE [Suspect]
     Indication: TYPE 2 DIABETES MELLITUS
  6. ROSIGLITAZONE [Suspect]
  7. LANTUS [Suspect]
     Indication: TYPE 2 DIABETES MELLITUS
     Dosage: 32 UNITS-PRECONCEPTION 34-0 WEEK 38-14 WEEK 113-22 WEEK 220-29 WEEK 247-35 WEEK 257-38 WEEK
  8. ASPIRIN [Suspect]
  9. NITROFURANTOIN [Suspect]
     Indication: URINARY TRACT INFECTION
  10. ANTIBIOTICS [Concomitant]
     Indication: AMNIOTIC CAVITY INFECTION
  11. DILTIAZEM CD [Concomitant]
     Indication: HYPERTENSION
     Dosage: 240MG 35 AND 38 WEEK

REACTIONS (5)
  - AMNIOTIC CAVITY INFECTION [None]
  - CAESAREAN SECTION [None]
  - PRE-ECLAMPSIA [None]
  - PREGNANCY [None]
  - URINARY TRACT INFECTION [None]
